FAERS Safety Report 6711937-2 (Version None)
Quarter: 2010Q2

REPORT INFORMATION
  Report Type: 
  Country: None (occurrence: None)
  Receive Date: 20100505
  Receipt Date: 20100111
  Transmission Date: 20101027
  Serious: No
  Sender: FDA-Public Use
  Company Number: US-TYCO HEALTHCARE/MALLINCKRODT-T201000068

PATIENT
  Sex: Male
  Weight: 88.435 kg

DRUGS (3)
  1. METHADONE HCL [Suspect]
     Indication: PAIN
     Dosage: 10 MG, TID
     Route: 048
     Dates: start: 20100107
  2. MORPHINE [Concomitant]
     Indication: PAIN
     Dosage: 30 MG, Q12
     Dates: start: 20080101, end: 20100107
  3. MORPHINE [Concomitant]
     Indication: BREAKTHROUGH PAIN
     Dosage: MORPHINE IR, 15 MG, TID
     Dates: start: 20080101, end: 20100107

REACTIONS (4)
  - ABDOMINAL PAIN UPPER [None]
  - DIARRHOEA [None]
  - DRUG EFFECT DECREASED [None]
  - PAIN [None]
